FAERS Safety Report 7358492-4 (Version None)
Quarter: 2011Q1

REPORT INFORMATION
  Report Type: 
  Country: None (occurrence: None)
  Receive Date: 20110317
  Receipt Date: 20110303
  Transmission Date: 20110831
  Serious: Yes (Other)
  Sender: FDA-Public Use
  Company Number: NZ-WATSON-2011-03342

PATIENT
  Age: 78 Year
  Sex: Female

DRUGS (1)
  1. OMEPRAZOLE [Suspect]
     Indication: HIATUS HERNIA
     Dosage: 40 MG, DAILY

REACTIONS (3)
  - HYPOMAGNESAEMIA [None]
  - VOMITING [None]
  - DIARRHOEA [None]
